FAERS Safety Report 13878538 (Version 1)
Quarter: 2017Q3

REPORT INFORMATION
  Report Type: Spontaneous
  Country: US (occurrence: US)
  Receive Date: 20170817
  Receipt Date: 20170817
  Transmission Date: 20171127
  Serious: No
  Sender: FDA-Public Use
  Company Number: US-ROCHE-1958829

PATIENT
  Age: 43 Year
  Sex: Female
  Weight: 97.61 kg

DRUGS (1)
  1. ALECENSA [Suspect]
     Active Substance: ALECTINIB HYDROCHLORIDE
     Indication: PRODUCT USED FOR UNKNOWN INDICATION
     Route: 065
     Dates: start: 201611

REACTIONS (4)
  - Photosensitivity reaction [Not Recovered/Not Resolved]
  - Constipation [Unknown]
  - Sunburn [Unknown]
  - Weight increased [Unknown]

NARRATIVE: CASE EVENT DATE: 201701
